FAERS Safety Report 5086029-1 (Version None)
Quarter: 2006Q3

REPORT INFORMATION
  Report Type: 
  Country: None (occurrence: None)
  Receive Date: 20060817
  Receipt Date: 20060807
  Transmission Date: 20061208
  Serious: Yes (Other)
  Sender: FDA-Public Use
  Company Number: 2006-02053

PATIENT
  Age: 59 Year
  Sex: 0

DRUGS (1)
  1. VELCADE [Suspect]
     Indication: MULTIPLE MYELOMA

REACTIONS (2)
  - TACHYCARDIA [None]
  - VENTRICULAR EXTRASYSTOLES [None]
